FAERS Safety Report 6299670-5 (Version None)
Quarter: 2009Q3

REPORT INFORMATION
  Report Type: 
  Country: None (occurrence: None)
  Receive Date: 20090805
  Receipt Date: 20090805
  Transmission Date: 20100115
  Serious: Yes (Other)
  Sender: FDA-Public Use
  Company Number: None

PATIENT
  Age: 51 Year
  Sex: Female

DRUGS (2)
  1. SORAFENIB [Suspect]
     Indication: PANCREATIC CARCINOMA METASTATIC
     Dosage: 400MG BID PO
     Route: 048
     Dates: start: 20090331, end: 20090413
  2. ERLOTINIB [Suspect]
     Dosage: 150 MG DAILY PO
     Route: 048
     Dates: start: 20090331, end: 20090413

REACTIONS (2)
  - DISEASE PROGRESSION [None]
  - RASH [None]
